FAERS Safety Report 21453662 (Version 1)
Quarter: 2022Q4

REPORT INFORMATION
  Report Type: Other
  Country: JP (occurrence: JP)
  Receive Date: 20221013
  Receipt Date: 20221013
  Transmission Date: 20230112
  Serious: Yes (Hospitalization, Other)
  Sender: FDA-Public Use
  Company Number: JP-Osmotica_Pharmaceutical_US_LLC-POI0573202200104

PATIENT
  Age: 67 Year
  Sex: Female
  Weight: 52.5 kg

DRUGS (2)
  1. VENLAFAXINE [Suspect]
     Active Substance: VENLAFAXINE HYDROCHLORIDE
     Indication: Depression
     Route: 048
     Dates: start: 2022, end: 2022
  2. VENLAFAXINE [Suspect]
     Active Substance: VENLAFAXINE HYDROCHLORIDE
     Dosage: UNKNOWN
     Route: 048
     Dates: start: 2022, end: 2022

REACTIONS (5)
  - Clonus [Recovered/Resolved]
  - Altered state of consciousness [Recovered/Resolved]
  - Depression [Recovered/Resolved]
  - Illness anxiety disorder [Recovered/Resolved]
  - Decreased appetite [Recovered/Resolved]

NARRATIVE: CASE EVENT DATE: 20220101
